FAERS Safety Report 20049715 (Version 3)
Quarter: 2022Q1

REPORT INFORMATION
  Report Type: Other
  Country: US (occurrence: None)
  Receive Date: 20211109
  Receipt Date: 20220221
  Transmission Date: 20220423
  Serious: Yes (Other)
  Sender: FDA-Public Use
  Company Number: US-ROCHE-2946059

PATIENT
  Age: 69 Year
  Sex: Female
  Weight: 73.094 kg

DRUGS (2)
  1. OCREVUS [Suspect]
     Active Substance: OCRELIZUMAB
     Indication: Multiple sclerosis
     Dosage: DATE OF TREATMENT: 26/SEP/2017, 26/MAR/2018. DATE OF NEXT INFUSION : 24/SEP/2018
     Route: 042
     Dates: start: 20200403
  2. MODERNA COVID-19 VACCINE [Concomitant]
     Active Substance: ELASOMERAN
     Dates: start: 20210331, end: 20210818

REACTIONS (5)
  - Multiple sclerosis [Not Recovered/Not Resolved]
  - Pneumonia [Recovered/Resolved]
  - COVID-19 [Recovered/Resolved]
  - Weight decreased [Recovering/Resolving]
  - Dysphagia [Recovered/Resolved]

NARRATIVE: CASE EVENT DATE: 20201201
